FAERS Safety Report 9247460 (Version 2)
Quarter: 2013Q2

REPORT INFORMATION
  Report Type: Spontaneous
  Country: ES (occurrence: ES)
  Receive Date: 20130423
  Receipt Date: 20130510
  Transmission Date: 20140414
  Serious: Yes (Hospitalization, Other)
  Sender: FDA-Public Use
  Company Number: ES-ROXANE LABORATORIES, INC.-2013-BI-10972GD

PATIENT
  Age: 55 Year
  Sex: Female

DRUGS (11)
  1. MORPHINE [Suspect]
     Indication: BONE PAIN
     Route: 048
  2. MORPHINE [Suspect]
     Indication: NEURALGIA
     Dosage: 450 MG
     Route: 058
  3. TRAMADOL [Suspect]
     Indication: BONE PAIN
  4. TRAMADOL [Suspect]
     Indication: NEURALGIA
  5. BUPRENORPHINE [Suspect]
     Indication: BONE PAIN
     Route: 062
  6. BUPRENORPHINE [Suspect]
     Indication: NEURALGIA
  7. FENTANYL [Suspect]
     Indication: BONE PAIN
     Route: 062
  8. FENTANYL [Suspect]
     Indication: NEURALGIA
  9. OXYCODONE [Suspect]
     Indication: BONE PAIN
     Dosage: 320 MG
     Route: 048
  10. OXYCODONE [Suspect]
     Indication: NEURALGIA
  11. HORMONES [Concomitant]
     Indication: HORMONE REPLACEMENT THERAPY

REACTIONS (7)
  - Drug ineffective [Recovered/Resolved]
  - Constipation [Unknown]
  - Gastrointestinal hypomotility [Unknown]
  - Acute abdomen [Unknown]
  - Delirium [Unknown]
  - Haemorrhoids [Unknown]
  - Pain [Unknown]
